FAERS Safety Report 5097033-1 (Version None)
Quarter: 2006Q3

REPORT INFORMATION
  Report Type: 
  Country: None (occurrence: None)
  Receive Date: 20060901
  Receipt Date: 20060822
  Transmission Date: 20061208
  Serious: Yes (Other)
  Sender: FDA-Public Use
  Company Number: 2006101779

PATIENT
  Age: 71 Year
  Sex: Female

DRUGS (6)
  1. NORVASC [Suspect]
     Indication: DRUG USE FOR UNKNOWN INDICATION
     Dosage: (5 MG, QD), ORAL
     Route: 048
  2. CALCIFEROL (ERGOCALCIFEROL) [Concomitant]
  3. CALCIUM CARBONATE (CALCIUM CARBONATE) [Concomitant]
  4. GLYCINE 1.5% [Concomitant]
  5. GLUCOSAMINE (GLUCOSAMINE) [Concomitant]
  6. VITAMINS (VITAMINS) [Concomitant]

REACTIONS (6)
  - BLOOD PRESSURE SYSTOLIC INCREASED [None]
  - DIZZINESS [None]
  - HEADACHE [None]
  - MALAISE [None]
  - NAUSEA [None]
  - UNEVALUABLE EVENT [None]
